FAERS Safety Report 8764848 (Version 2)
Quarter: 2012Q4

REPORT INFORMATION
  Report Type: 
  Country: US (occurrence: US)
  Receive Date: 20120901
  Receipt Date: 20120905
  Transmission Date: 20130627
  Serious: No
  Sender: FDA-Public Use
  Company Number: US-009507513-1208USA008858

PATIENT

DRUGS (2)
  1. IMPLANON [Suspect]
     Dosage: 1 rod for 3 years
     Route: 059
     Dates: start: 20090805, end: 20120816
  2. IMPLANON [Suspect]
     Dosage: UNK
     Dates: start: 20120816

REACTIONS (3)
  - Device breakage [Unknown]
  - Incorrect drug administration duration [Unknown]
  - No adverse event [Unknown]
